FAERS Safety Report 6413909-4 (Version None)
Quarter: 2009Q4

REPORT INFORMATION
  Report Type: 
  Country: None (occurrence: None)
  Receive Date: 20091026
  Receipt Date: 20091014
  Transmission Date: 20100525
  Serious: Yes (Other)
  Sender: FDA-Public Use
  Company Number: B0599364A

PATIENT
  Age: 52 Year
  Sex: Male

DRUGS (3)
  1. HEPSERA [Suspect]
     Indication: HEPATITIS B
     Route: 065
  2. LAMIVUDINE [Suspect]
     Indication: HEPATITIS B
     Route: 065
  3. ENTECAVIR [Suspect]
     Indication: HEPATITIS B
     Route: 065

REACTIONS (2)
  - DRUG RESISTANCE [None]
  - THERAPEUTIC RESPONSE DECREASED [None]
